FAERS Safety Report 17719530 (Version 2)
Quarter: 2020Q2

REPORT INFORMATION
  Report Type: Spontaneous
  Country: FR (occurrence: FR)
  Receive Date: 20200428
  Receipt Date: 20200506
  Transmission Date: 20200714
  Serious: Yes (Hospitalization)
  Sender: FDA-Public Use
  Company Number: FR-OTSUKA-2020_010546

PATIENT
  Age: 34 Year
  Sex: Male
  Weight: 110 kg

DRUGS (2)
  1. LEPTICUR [Concomitant]
     Active Substance: TROPATEPINE HYDROCHLORIDE
     Indication: TREMOR
     Dosage: 10 MG, UNK
     Route: 048
  2. ABILIFY MAINTENA [Suspect]
     Active Substance: ARIPIPRAZOLE
     Indication: SCHIZOPHRENIA
     Dosage: 1 DF, QM
     Route: 030

REACTIONS (3)
  - Diabetes mellitus [Not Recovered/Not Resolved]
  - Hyperglycaemic hyperosmolar nonketotic syndrome [Recovered/Resolved]
  - Ketoacidosis [Recovered/Resolved]

NARRATIVE: CASE EVENT DATE: 20200406
